FAERS Safety Report 18948399 (Version 1)
Quarter: 2021Q1

REPORT INFORMATION
  Report Type: Spontaneous
  Country: US (occurrence: US)
  Receive Date: 20210226
  Receipt Date: 20210226
  Transmission Date: 20210420
  Serious: No
  Sender: FDA-Public Use
  Company Number: US-ROCHE-2577188

PATIENT
  Sex: Female

DRUGS (2)
  1. XOLAIR [Suspect]
     Active Substance: OMALIZUMAB
     Indication: ASTHMA
     Dosage: FORM STRENGTH OF 150 MG/ML
     Route: 058
     Dates: start: 20200131
  2. XOLAIR [Suspect]
     Active Substance: OMALIZUMAB
     Dosage: FORM STRENGTH OF 75 MG/0.5 ML
     Route: 058
     Dates: start: 20200131

REACTIONS (2)
  - Constipation [Unknown]
  - Weight increased [Unknown]
